FAERS Safety Report 13514672 (Version 1)
Quarter: 2017Q2

REPORT INFORMATION
  Report Type: Spontaneous
  Country: FR (occurrence: FR)
  Receive Date: 20170504
  Receipt Date: 20170504
  Transmission Date: 20170830
  Serious: Yes (Other)
  Sender: FDA-Public Use
  Company Number: FR-JNJFOC-20170429882

PATIENT
  Age: 44 Year
  Sex: Male

DRUGS (2)
  1. NATISPRAY [Concomitant]
     Active Substance: NITROGLYCERIN
     Route: 065
  2. STELARA [Suspect]
     Active Substance: USTEKINUMAB
     Indication: PSORIASIS
     Route: 058
     Dates: start: 201401

REACTIONS (2)
  - Arterial stenosis [Unknown]
  - Treatment noncompliance [Unknown]
